FAERS Safety Report 18171154 (Version 1)
Quarter: 2020Q3

REPORT INFORMATION
  Report Type: Spontaneous
  Country: US (occurrence: US)
  Receive Date: 20200819
  Receipt Date: 20200819
  Transmission Date: 20201103
  Serious: No
  Sender: FDA-Public Use
  Company Number: US-OREXO US, INC.-ORE202006-000048

PATIENT
  Sex: Female

DRUGS (2)
  1. ZUBSOLV [Suspect]
     Active Substance: BUPRENORPHINE HYDROCHLORIDE\NALOXONE HYDROCHLORIDE
     Dosage: BREAKING THE TABLET INTO 4THS AND TAKING THEM AT DIFFERENT TIMES DURING THE DAY
  2. ZUBSOLV [Suspect]
     Active Substance: BUPRENORPHINE HYDROCHLORIDE\NALOXONE HYDROCHLORIDE
     Indication: PAIN
     Dosage: TOOK FULL TABLET

REACTIONS (4)
  - Wrong technique in product usage process [Unknown]
  - Dizziness [Unknown]
  - Somnolence [Unknown]
  - Drug effective for unapproved indication [Unknown]
